FAERS Safety Report 6372564-2 (Version None)
Quarter: 2009Q3

REPORT INFORMATION
  Report Type: 
  Country: None (occurrence: None)
  Receive Date: 20090924
  Receipt Date: 20080911
  Transmission Date: 20100115
  Serious: No
  Sender: FDA-Public Use
  Company Number: US-ASTRAZENECA-2008UW18833

PATIENT
  Age: 65 Year
  Sex: Female
  Weight: 72.6 kg

DRUGS (2)
  1. SEROQUEL [Suspect]
     Indication: AFFECTIVE DISORDER
     Route: 048
     Dates: start: 20070301
  2. PROZAC [Concomitant]

REACTIONS (1)
  - ALOPECIA [None]
